FAERS Safety Report 26110977 (Version 2)
Quarter: 2025Q4

REPORT INFORMATION
  Report Type: Spontaneous
  Country: US (occurrence: US)
  Receive Date: 20251202
  Receipt Date: 20251223
  Transmission Date: 20260119
  Serious: No
  Sender: JOHNSON AND JOHNSON
  Company Number: US-JNJFOC-20251160127

PATIENT
  Age: 73 Year
  Sex: Female

DRUGS (2)
  1. TREMFYA [Suspect]
     Active Substance: GUSELKUMAB
     Indication: Arthritis
  2. TREMFYA [Suspect]
     Active Substance: GUSELKUMAB
     Indication: Gout

REACTIONS (6)
  - Accidental exposure to product [Unknown]
  - Product storage error [Unknown]
  - Product dose omission issue [Unknown]
  - Product administration error [Unknown]
  - Device issue [Unknown]
  - Off label use [Unknown]

NARRATIVE: CASE EVENT DATE: 20251115
